FAERS Safety Report 8184396-3 (Version None)
Quarter: 2012Q1

REPORT INFORMATION
  Report Type: 
  Country: None (occurrence: None)
  Receive Date: 20120305
  Receipt Date: 20120224
  Transmission Date: 20120608
  Serious: Yes (Hospitalization)
  Sender: FDA-Public Use
  Company Number: AU-JNJFOC-20120108958

PATIENT
  Sex: Male
  Weight: 62.2 kg

DRUGS (9)
  1. MAXALT [Concomitant]
     Indication: HEADACHE
     Route: 065
     Dates: start: 20111001
  2. PANADOL OSTEO [Concomitant]
     Indication: OSTEOARTHRITIS
     Route: 065
     Dates: start: 20120105
  3. PREDNISONE TAB [Suspect]
     Indication: PROSTATE CANCER METASTATIC
     Route: 065
     Dates: start: 20111027
  4. ELIGARD [Concomitant]
     Indication: HORMONE THERAPY
     Route: 065
     Dates: start: 20090420
  5. ABIRATERONE ACETATE [Suspect]
     Indication: PROSTATE CANCER METASTATIC
     Route: 048
     Dates: start: 20111028, end: 20120105
  6. OXYCODONE HCL [Concomitant]
     Indication: HEADACHE
     Route: 065
     Dates: start: 20120118
  7. ABIRATERONE ACETATE [Suspect]
     Route: 048
  8. XALATAN [Concomitant]
     Indication: GLAUCOMA
     Route: 065
     Dates: start: 19800101
  9. BRIMONIDINE TARTRATE [Concomitant]
     Indication: GLAUCOMA
     Route: 047
     Dates: start: 19800101

REACTIONS (1)
  - DIZZINESS [None]
